FAERS Safety Report 6614598-6 (Version None)
Quarter: 2010Q1

REPORT INFORMATION
  Report Type: 
  Country: None (occurrence: None)
  Receive Date: 20100226
  Receipt Date: 20100217
  Transmission Date: 20100710
  Serious: Yes (Other)
  Sender: FDA-Public Use
  Company Number: 2010US000436

PATIENT
  Sex: Female

DRUGS (8)
  1. VESICARE [Suspect]
     Indication: HYPERTONIC BLADDER
     Dosage: 10 MG, UID/QD, ORAL
     Route: 048
     Dates: end: 20100203
  2. BYSTOLIC [Concomitant]
  3. PLAQUENIL [Concomitant]
  4. PLAVIX [Concomitant]
  5. PROAIR (FLUTICASONE PROPIONATE) [Concomitant]
  6. ASMANEX TWISTHALER [Concomitant]
  7. WATER PILL [Concomitant]
  8. LISINOPRIL [Concomitant]

REACTIONS (5)
  - CONSTIPATION [None]
  - DYSPNOEA [None]
  - ELECTROCARDIOGRAM QT PROLONGED [None]
  - GASTROOESOPHAGEAL REFLUX DISEASE [None]
  - THROAT TIGHTNESS [None]
